FAERS Safety Report 4416775-1 (Version None)
Quarter: 2004Q3

REPORT INFORMATION
  Report Type: 
  Country: None (occurrence: None)
  Receive Date: 20040802
  Receipt Date: 20040729
  Transmission Date: 20050211
  Serious: Yes (Hospitalization)
  Sender: FDA-Public Use
  Company Number: TCI2004A02279

PATIENT
  Age: 69 Year
  Sex: Female

DRUGS (1)
  1. LANSAP 400 (LANSOPRAZOLE, CLARITHROMYCIN,AMOXICILLIN) (PREPARATION FOR [Suspect]
     Indication: GASTRIC ULCER
     Dosage: 0.5 CARD (0.5 CARD, 1 IN 1 D) PER ORAL
     Route: 048
     Dates: start: 20040531, end: 20040531

REACTIONS (10)
  - CHILLS [None]
  - CONJUNCTIVAL HYPERAEMIA [None]
  - EXCORIATION [None]
  - FACE OEDEMA [None]
  - FEELING HOT [None]
  - GENERALISED ERYTHEMA [None]
  - LYMPHOCYTE STIMULATION TEST POSITIVE [None]
  - PRURITUS [None]
  - PYREXIA [None]
  - RASH [None]
